FAERS Safety Report 25794923 (Version 2)
Quarter: 2025Q4

REPORT INFORMATION
  Report Type: Spontaneous
  Country: JP (occurrence: JP)
  Receive Date: 20250912
  Receipt Date: 20251013
  Transmission Date: 20260118
  Serious: Yes (Death, Other)
  Sender: WAYLIS THERAPEUTICS LLC
  Company Number: JP-WT-2025-07253

PATIENT
  Age: 8 Decade
  Sex: Male

DRUGS (1)
  1. LUNESTA [Suspect]
     Active Substance: ESZOPICLONE
     Route: 048

REACTIONS (2)
  - Neuroleptic malignant syndrome [Fatal]
  - Death [Fatal]
